FAERS Safety Report 22325856 (Version 1)
Quarter: 2023Q2

REPORT INFORMATION
  Report Type: Report from Study
  Country: US (occurrence: US)
  Receive Date: 20230516
  Receipt Date: 20230516
  Transmission Date: 20230722
  Serious: Yes (Other)
  Sender: FDA-Public Use
  Company Number: US-002147023-NVSC2023US104231

PATIENT
  Sex: Male
  Weight: 88.45 kg

DRUGS (6)
  1. COSENTYX [Suspect]
     Active Substance: SECUKINUMAB
     Indication: Psoriasis
     Dosage: 300 MG, (2 SYRINGES) (LAST COSENTYX INJECTION: SEP)
     Route: 058
  2. KETOCONAZOLE [Suspect]
     Active Substance: KETOCONAZOLE
     Indication: Psoriasis
     Dosage: 2 %
     Route: 061
  3. CLOBETASOL [Suspect]
     Active Substance: CLOBETASOL
     Indication: Psoriasis
     Dosage: 0.05 % (SPRAY, NON-AEROSOL)
     Route: 065
  4. VALACYCLOVIR [Suspect]
     Active Substance: VALACYCLOVIR HYDROCHLORIDE
     Indication: Psoriasis
     Dosage: 1 G
     Route: 065
  5. ALCOHOL [Suspect]
     Active Substance: ALCOHOL
     Indication: Psoriasis
     Dosage: UNK
     Route: 065
  6. LIDOCAINE [Suspect]
     Active Substance: LIDOCAINE
     Indication: Psoriasis
     Dosage: UNK, LIDOCAINE 1%-EPINEPHRINE (0.4 ML)
     Route: 065

REACTIONS (18)
  - Basal cell carcinoma [Unknown]
  - Actinomycotic skin infection [Unknown]
  - Seborrhoeic keratosis [Unknown]
  - Exfoliative rash [Unknown]
  - Photodermatosis [Unknown]
  - Perioral dermatitis [Unknown]
  - Seborrhoeic dermatitis [Unknown]
  - Photosensitivity reaction [Unknown]
  - Telangiectasia [Unknown]
  - Papule [Unknown]
  - Hair follicle tumour benign [Unknown]
  - Melanocytic naevus [Unknown]
  - Neoplasm skin [Unknown]
  - Actinic keratosis [Unknown]
  - Herpes zoster [Recovered/Resolved]
  - Psoriasis [Unknown]
  - Product use in unapproved indication [Unknown]
  - Treatment failure [Unknown]
